FAERS Safety Report 5080790-8 (Version None)
Quarter: 2006Q3

REPORT INFORMATION
  Report Type: 
  Country: None (occurrence: None)
  Receive Date: 20060809
  Receipt Date: 20060725
  Transmission Date: 20061208
  Serious: Yes (Hospitalization)
  Sender: FDA-Public Use
  Company Number: GXKR2006KR04286

PATIENT
  Age: 63 Year
  Sex: Female

DRUGS (6)
  1. NIFEDIPINE [Suspect]
     Indication: HYPERTENSION
     Dosage: 30 MG, ORAL
     Route: 048
  2. METFORMIN HCL [Suspect]
     Indication: DIABETES MELLITUS
     Dosage: 500 MG, ORAL
     Route: 048
  3. GLICLAZIDE (NGX)(GLICLAZIDE) [Suspect]
     Indication: DIABETES MELLITUS
     Dosage: 30 MG, ORAL
     Route: 048
  4. CILAZAPRIL(CILAZAPRIL) [Suspect]
     Indication: HYPERTENSION
     Dosage: 30 MG, ORAL
     Route: 048
  5. ACARBOSE [Concomitant]
  6. CARVEDILOL [Concomitant]

REACTIONS (3)
  - ENDOMETRIAL DISORDER [None]
  - MALIGNANT MELANOMA OF SITES OTHER THAN SKIN [None]
  - UTERINE HAEMORRHAGE [None]
